FAERS Safety Report 5287683-1 (Version None)
Quarter: 2007Q1

REPORT INFORMATION
  Report Type: 
  Country: None (occurrence: None)
  Receive Date: 20070105
  Receipt Date: 20061207
  Transmission Date: 20070707
  Serious: Yes (Other)
  Sender: FDA-Public Use
  Company Number: US-JNJFOC-20061003690

PATIENT

DRUGS (7)
  1. ULTRAM SR [Suspect]
     Indication: ARTHRITIS
  2. OTHER MEDICATIONS (ALL OTHER THERAPEUTIC PRODUCTS) [Concomitant]
  3. LASIX [Concomitant]
  4. ULTRACET [Concomitant]
  5. ZESTRIL [Concomitant]
  6. LIPITOR [Concomitant]
  7. LOPID [Concomitant]

REACTIONS (1)
  - STEVENS-JOHNSON SYNDROME [None]
